FAERS Safety Report 8531901-0 (Version None)
Quarter: 2012Q3

REPORT INFORMATION
  Report Type: 
  Country: None (occurrence: None)
  Receive Date: 20120723
  Receipt Date: 20120717
  Transmission Date: 20120928
  Serious: Yes (Hospitalization)
  Sender: FDA-Public Use
  Company Number: PHHY2012US061594

PATIENT
  Age: 78 Year
  Sex: Female

DRUGS (1)
  1. AMIODARONE HCL [Suspect]
     Indication: ATRIAL FIBRILLATION
     Dosage: 200 TO 400 MG, DAILY

REACTIONS (5)
  - PELVIC FRACTURE [None]
  - PRODUCTIVE COUGH [None]
  - FALL [None]
  - EOSINOPHILIC PNEUMONIA [None]
  - DYSPNOEA [None]
